FAERS Safety Report 15587960 (Version 4)
Quarter: 2019Q1

REPORT INFORMATION
  Report Type: Report from Study
  Country: US (occurrence: US)
  Receive Date: 20181105
  Receipt Date: 20190116
  Transmission Date: 20190417
  Serious: Yes (Hospitalization)
  Sender: FDA-Public Use
  Company Number: US-ACTELION-A-US2018-181259

PATIENT
  Age: 86 Year
  Sex: Female
  Weight: 72.56 kg

DRUGS (1)
  1. TRACLEER [Suspect]
     Active Substance: BOSENTAN
     Indication: PULMONARY ARTERIAL HYPERTENSION
     Dosage: 125 MG, BID
     Route: 048

REACTIONS (13)
  - Pneumonia [Unknown]
  - Dyspnoea [Unknown]
  - Bedridden [Unknown]
  - Feeling abnormal [Unknown]
  - Fall [Unknown]
  - Confusional state [Unknown]
  - Hypersensitivity [Unknown]
  - Malaise [Unknown]
  - Pulmonary fibrosis [Unknown]
  - Respiratory syncytial virus infection [Unknown]
  - Asthma [Unknown]
  - Pulmonary arterial hypertension [Unknown]
  - Asthenia [Unknown]

NARRATIVE: CASE EVENT DATE: 20181007
